FAERS Safety Report 7555670-6 (Version None)
Quarter: 2011Q2

REPORT INFORMATION
  Report Type: 
  Country: None (occurrence: None)
  Receive Date: 20110617
  Receipt Date: 20080828
  Transmission Date: 20111010
  Serious: Yes (Hospitalization)
  Sender: FDA-Public Use
  Company Number: PHHY2008AT10929

PATIENT
  Sex: Female

DRUGS (6)
  1. PASPERTIN                               /GFR/ [Concomitant]
     Dosage: UNK
  2. BERODUAL [Concomitant]
     Dosage: UNK
  3. AMLODIPINE BESYLATE/VALSARTAN [Suspect]
     Indication: ESSENTIAL HYPERTENSION
     Dosage: 5/80 MG DAILY
     Route: 048
     Dates: start: 20071210, end: 20071215
  4. PLAVIX [Concomitant]
     Dosage: 1 DF, QD
  5. OXYCONTIN [Concomitant]
     Dosage: 10 MG, BID
  6. PANTOLOC ^BYK GULDEN^ [Concomitant]
     Dosage: 1 DF, QD

REACTIONS (1)
  - HYPERTENSIVE CRISIS [None]
